FAERS Safety Report 8580833 (Version 6)
Quarter: 2013Q3

REPORT INFORMATION
  Report Type: Spontaneous
  Country: US (occurrence: US)
  Receive Date: 20120525
  Receipt Date: 20130823
  Transmission Date: 20140515
  Serious: Yes (Other)
  Sender: FDA-Public Use
  Company Number: US-ROCHE-780441

PATIENT
  Age: 23 Year
  Sex: Male
  Weight: 77.18 kg

DRUGS (1)
  1. ACCUTANE [Suspect]
     Indication: ACNE
     Route: 065
     Dates: start: 20011027, end: 200205

REACTIONS (6)
  - Crohn^s disease [Unknown]
  - Perirectal abscess [Recovered/Resolved]
  - Anal fistula [Unknown]
  - Inflammatory bowel disease [Unknown]
  - Lip dry [Unknown]
  - Cheilitis [Unknown]
